FAERS Safety Report 5091824-9 (Version None)
Quarter: 2006Q3

REPORT INFORMATION
  Report Type: 
  Country: None (occurrence: None)
  Receive Date: 20060829
  Receipt Date: 20060621
  Transmission Date: 20061208
  Serious: No
  Sender: FDA-Public Use
  Company Number: US-BRISTOL-MYERS SQUIBB COMPANY-13418835

PATIENT
  Age: 62 Year
  Sex: Male

DRUGS (2)
  1. ERBITUX [Suspect]
     Indication: LARYNGEAL CANCER
  2. RADIATION THERAPY [Concomitant]

REACTIONS (2)
  - GLOSSITIS [None]
  - RASH [None]
